FAERS Safety Report 23357974 (Version 1)
Quarter: 2024Q1

REPORT INFORMATION
  Report Type: Other
  Country: US (occurrence: None)
  Receive Date: 20240102
  Receipt Date: 20240102
  Transmission Date: 20240410
  Serious: Yes (Other)
  Sender: FDA-Public Use
  Company Number: US-Nivagen-000092

PATIENT
  Age: 45 Year
  Sex: Male

DRUGS (2)
  1. TEMOZOLOMIDE [Suspect]
     Active Substance: TEMOZOLOMIDE
     Indication: Disease recurrence
     Dosage: 75 MG/M(2), ONCE A DAY
  2. OLAPARIB [Suspect]
     Active Substance: OLAPARIB
     Indication: Disease recurrence
     Dosage: 150 MG THREE TIMES A WEEK

REACTIONS (8)
  - Glioblastoma [Unknown]
  - Disease progression [Unknown]
  - Constipation [Unknown]
  - Dyspepsia [Unknown]
  - Fatigue [Unknown]
  - Insomnia [Unknown]
  - Mucosal inflammation [Unknown]
  - Nausea [Unknown]
